FAERS Safety Report 19721142 (Version 1)
Quarter: 2021Q3

REPORT INFORMATION
  Report Type: Spontaneous
  Country: US (occurrence: US)
  Receive Date: 20210818
  Receipt Date: 20210818
  Transmission Date: 20211014
  Serious: No
  Sender: FDA-Public Use
  Company Number: US-009507513-2108USA003509

PATIENT
  Sex: Female

DRUGS (2)
  1. PROVENTIL [Suspect]
     Active Substance: ALBUTEROL
     Indication: ROUTINE HEALTH MAINTENANCE
     Dosage: 2 PUFFS, BID
     Dates: start: 20210721
  2. PROVENTIL [Suspect]
     Active Substance: ALBUTEROL
     Indication: ROUTINE HEALTH MAINTENANCE
     Dosage: 2 PUFFS, BID
     Dates: start: 20210620

REACTIONS (9)
  - Device delivery system issue [Unknown]
  - Device delivery system issue [Unknown]
  - Poor quality device used [Unknown]
  - Device defective [Unknown]
  - Incorrect dose administered by device [Unknown]
  - Poor quality device used [Unknown]
  - No adverse event [Unknown]
  - Incorrect dose administered by device [Unknown]
  - Device defective [Unknown]

NARRATIVE: CASE EVENT DATE: 20210709
